FAERS Safety Report 6871381-4 (Version None)
Quarter: 2010Q3

REPORT INFORMATION
  Report Type: 
  Country: None (occurrence: None)
  Receive Date: 20100723
  Receipt Date: 20100713
  Transmission Date: 20110219
  Serious: Yes (Other)
  Sender: FDA-Public Use
  Company Number: US-PFIZER INC-2009262058

PATIENT
  Sex: Male
  Weight: 86.168 kg

DRUGS (6)
  1. SUTENT [Suspect]
     Indication: RENAL CELL CARCINOMA
     Dosage: 50 MG (4 CAPSULES OF 12.5 MG), 1X/DAY
     Route: 048
     Dates: start: 20090820
  2. DIOVAN [Concomitant]
     Dosage: 80 MG, 1X/DAY
  3. VITAMIN B-12 [Concomitant]
     Dosage: UNK 1X/DAY
  4. GLUCOSAMINE [Concomitant]
     Dosage: UNK 1X/DAY
  5. CHONDROITIN [Concomitant]
     Dosage: UNK 1X/DAY
  6. LEVOTHYROXINE [Suspect]

REACTIONS (5)
  - ABASIA [None]
  - GOUT [None]
  - OEDEMA PERIPHERAL [None]
  - PALMAR-PLANTAR ERYTHRODYSAESTHESIA SYNDROME [None]
  - THYROID DISORDER [None]
